FAERS Safety Report 7169839-6 (Version None)
Quarter: 2010Q4

REPORT INFORMATION
  Report Type: 
  Country: None (occurrence: None)
  Receive Date: 20101206
  Receipt Date: 20101124
  Transmission Date: 20110411
  Serious: Yes (Congenital Anomaly)
  Sender: FDA-Public Use
  Company Number: 2010AT000096

PATIENT

DRUGS (1)
  1. PROSTAVASIN (ALROSTADIL) [Suspect]
     Indication: EBSTEIN'S ANOMALY

REACTIONS (2)
  - CONDITION AGGRAVATED [None]
  - EBSTEIN'S ANOMALY [None]
